FAERS Safety Report 4802122-X (Version None)
Quarter: 2005Q4

REPORT INFORMATION
  Report Type: 
  Country: None (occurrence: None)
  Receive Date: 20051012
  Receipt Date: 20050929
  Transmission Date: 20060501
  Serious: Yes (Hospitalization, Congenital Anomaly)
  Sender: FDA-Public Use
  Company Number: 2005AP000757

PATIENT
  Sex: Male

DRUGS (1)
  1. PAROXETINE HCL TABLETS (10 MG) [Suspect]
     Indication: SOCIAL PHOBIA
     Dosage: 10 MG;QD;PO
     Route: 048
     Dates: start: 20030101, end: 20050101

REACTIONS (2)
  - CONGENITAL AORTIC STENOSIS [None]
  - DRUG EXPOSURE DURING PREGNANCY [None]
